FAERS Safety Report 4527793-7 (Version None)
Quarter: 2004Q4

REPORT INFORMATION
  Report Type: 
  Country: None (occurrence: None)
  Receive Date: 20041123
  Receipt Date: 20040220
  Transmission Date: 20050328
  Serious: Yes (Hospitalization)
  Sender: FDA-Public Use
  Company Number: ATO-04-0158(0)

PATIENT
  Age: 25 Year
  Sex: Female
  Weight: 59.9 kg

DRUGS (13)
  1. TRISENOX [Suspect]
     Indication: ACUTE PROMYELOCYTIC LEUKAEMIA
     Dosage: 9 MG (9 MG),IVI
     Dates: start: 20040122
  2. METOCLOPRAMIDE [Suspect]
  3. AMPHOTERICIN B [Concomitant]
  4. KYTRIL [Concomitant]
  5. ATIVAN [Concomitant]
  6. DIPHENHYDRAMINE [Concomitant]
  7. AMBIEN [Concomitant]
  8. VALACYCLOVIR HCL [Concomitant]
  9. PANTOPRAZOLE [Concomitant]
  10. ALLOPURINOL [Concomitant]
  11. LEUPROLIDE ACETATE [Concomitant]
  12. REGLAN [Concomitant]
  13. CEFEPIME [Concomitant]

REACTIONS (1)
  - ELECTROCARDIOGRAM QT PROLONGED [None]
